FAERS Safety Report 16005792 (Version 2)
Quarter: 2019Q1

REPORT INFORMATION
  Report Type: Spontaneous
  Country: JP (occurrence: JP)
  Receive Date: 20190226
  Receipt Date: 20190308
  Transmission Date: 20190418
  Serious: Yes (Hospitalization)
  Sender: FDA-Public Use
  Company Number: JP-PFIZER INC-2019085444

PATIENT
  Age: 52 Year
  Sex: Male

DRUGS (2)
  1. CEFEPIME HYDROCHLORIDE. [Suspect]
     Active Substance: CEFEPIME HYDROCHLORIDE
     Indication: PNEUMONIA ASPIRATION
     Dosage: UNK
     Route: 042
  2. MEROPENEM. [Suspect]
     Active Substance: MEROPENEM
     Indication: PNEUMONIA ASPIRATION
     Dosage: UNK
     Route: 041

REACTIONS (2)
  - Acute hepatic failure [Unknown]
  - Vitamin K deficiency [Unknown]
